FAERS Safety Report 5126453-1 (Version None)
Quarter: 2006Q4

REPORT INFORMATION
  Report Type: 
  Country: None (occurrence: None)
  Receive Date: 20061010
  Receipt Date: 20060927
  Transmission Date: 20070319
  Serious: Yes (Hospitalization, Other)
  Sender: FDA-Public Use
  Company Number: 2006118616

PATIENT
  Sex: Male

DRUGS (1)
  1. EXUBERA [Suspect]
     Indication: DIABETES MELLITUS
     Dates: start: 20060101

REACTIONS (2)
  - PYREXIA [None]
  - RESPIRATORY DISTRESS [None]
